FAERS Safety Report 6556372-5 (Version None)
Quarter: 2010Q1

REPORT INFORMATION
  Report Type: 
  Country: None (occurrence: None)
  Receive Date: 20100128
  Receipt Date: 20100119
  Transmission Date: 20100710
  Serious: Yes (Disabling)
  Sender: FDA-Public Use
  Company Number: GXKR2010AU00932

PATIENT

DRUGS (11)
  1. PARACETAMOL+CODEINE PHOSPHATE (NGX) [Suspect]
     Dosage: TOTAL DAILY CODEINE DOSE:  }8 TABLETS
  2. MORPHINE (NGX) [Suspect]
  3. PENICILLAMINE [Concomitant]
  4. PREDNISOLONE [Concomitant]
  5. PROPRANOLOL [Concomitant]
  6. PIZOTIFEN [Concomitant]
  7. VITAMIN D [Concomitant]
  8. VITAMIN B6 [Concomitant]
  9. VERAPAMIL [Concomitant]
  10. LISINOPRIL [Concomitant]
  11. BETAHISTINE [Concomitant]

REACTIONS (5)
  - COCHLEA IMPLANT [None]
  - DEAFNESS NEUROSENSORY [None]
  - MACROCYTOSIS [None]
  - TINNITUS [None]
  - VERTIGO [None]
